FAERS Safety Report 6932756-8 (Version None)
Quarter: 2010Q3

REPORT INFORMATION
  Report Type: 
  Country: None (occurrence: None)
  Receive Date: 20100819
  Receipt Date: 20100809
  Transmission Date: 20110219
  Serious: Yes (Other)
  Sender: FDA-Public Use
  Company Number: BE-ELI_LILLY_AND_COMPANY-BE201004003457

PATIENT
  Sex: Male
  Weight: 80 kg

DRUGS (5)
  1. CIALIS [Suspect]
     Indication: ERECTILE DYSFUNCTION
     Dosage: 5 MG, UNK
     Route: 065
     Dates: start: 20100101
  2. PLAVIX [Concomitant]
  3. CARDIOASPIRINE [Concomitant]
  4. EMCONCOR [Concomitant]
  5. SIMVASTATIN [Concomitant]

REACTIONS (1)
  - RETINAL DETACHMENT [None]
